FAERS Safety Report 18522508 (Version 7)
Quarter: 2022Q2

REPORT INFORMATION
  Report Type: Report from Study
  Country: US (occurrence: US)
  Receive Date: 20201119
  Receipt Date: 20220406
  Transmission Date: 20220721
  Serious: Yes (Other)
  Sender: FDA-Public Use
  Company Number: US-SHIRE-US202033609

PATIENT
  Sex: Female

DRUGS (2)
  1. HUMAN IMMUNOGLOBULIN G [Suspect]
     Active Substance: HUMAN IMMUNOGLOBULIN G
     Indication: Hypogammaglobulinaemia
     Dosage: 15 GRAM
     Route: 058
  2. HUMAN IMMUNOGLOBULIN G [Suspect]
     Active Substance: HUMAN IMMUNOGLOBULIN G
     Indication: Hypogammaglobulinaemia
     Dosage: UNK
     Route: 042

REACTIONS (22)
  - Rheumatoid arthritis [Unknown]
  - Demyelination [Unknown]
  - Limb discomfort [Unknown]
  - Weight fluctuation [Unknown]
  - Osteoarthritis [Unknown]
  - Dizziness [Unknown]
  - Nasal congestion [Unknown]
  - Multiple allergies [Unknown]
  - Dyspnoea [Not Recovered/Not Resolved]
  - Infusion site swelling [Unknown]
  - Nausea [Unknown]
  - Chills [Unknown]
  - Furuncle [Unknown]
  - Therapy interrupted [Unknown]
  - Multiple allergies [Unknown]
  - Arthritis [Unknown]
  - Breast cyst [Unknown]
  - Fatigue [Not Recovered/Not Resolved]
  - Tachycardia [Unknown]
  - Memory impairment [Unknown]
  - COVID-19 [Not Recovered/Not Resolved]
  - Injection site haemorrhage [Unknown]
